FAERS Safety Report 20802451 (Version 1)
Quarter: 2022Q2

REPORT INFORMATION
  Report Type: Spontaneous
  Country: US (occurrence: None)
  Receive Date: 20220509
  Receipt Date: 20220509
  Transmission Date: 20220720
  Serious: No
  Sender: FDA-Public Use
  Company Number: None

PATIENT
  Age: 71 Year
  Sex: Male

DRUGS (2)
  1. ATORVASTATIN [Suspect]
     Active Substance: ATORVASTATIN
     Indication: Hyperlipidaemia
     Dosage: FREQUENCY : AT BEDTIME;?
     Route: 048
     Dates: start: 20210623, end: 20220328
  2. AMIODARONE [Suspect]
     Active Substance: AMIODARONE
     Indication: Atrial fibrillation
     Dosage: FREQUENCY : DAILY;?
     Route: 048
     Dates: start: 20211210, end: 20220315

REACTIONS (6)
  - Melaena [None]
  - Gastrointestinal haemorrhage [None]
  - Hypertransaminasaemia [None]
  - Rhabdomyolysis [None]
  - Myopathy [None]
  - Drug interaction [None]

NARRATIVE: CASE EVENT DATE: 20220401
